FAERS Safety Report 23433320 (Version 6)
Quarter: 2024Q1

REPORT INFORMATION
  Report Type: Spontaneous
  Country: US (occurrence: US)
  Receive Date: 20240123
  Receipt Date: 20240321
  Transmission Date: 20240410
  Serious: No
  Sender: FDA-Public Use
  Company Number: US-PFIZER INC-PV202400008696

PATIENT
  Age: 37 Year
  Sex: Female

DRUGS (2)
  1. IBRANCE [Suspect]
     Active Substance: PALBOCICLIB
     Dosage: UNK
  2. IBRANCE [Suspect]
     Active Substance: PALBOCICLIB
     Dosage: UNK
     Dates: start: 20240311

REACTIONS (17)
  - Fatigue [Unknown]
  - Nausea [Unknown]
  - Diarrhoea [Unknown]
  - Alopecia [Unknown]
  - Rash erythematous [Recovered/Resolved]
  - White blood cell count decreased [Unknown]
  - Hepatic enzyme abnormal [Unknown]
  - Infection [Unknown]
  - Malaise [Unknown]
  - Poor quality sleep [Unknown]
  - Hot flush [Unknown]
  - Night sweats [Unknown]
  - Gingival pain [Unknown]
  - Throat lesion [Unknown]
  - Pain [Unknown]
  - Stomatitis [Unknown]
  - Nasopharyngitis [Unknown]
